FAERS Safety Report 16946117 (Version 5)
Quarter: 2021Q2

REPORT INFORMATION
  Report Type: Spontaneous
  Country: US (occurrence: US)
  Receive Date: 20191022
  Receipt Date: 20210423
  Transmission Date: 20210716
  Serious: No
  Sender: FDA-Public Use
  Company Number: US-PFIZER INC-2018258436

PATIENT
  Age: 56 Year
  Sex: Female

DRUGS (2)
  1. IBRANCE [Suspect]
     Active Substance: PALBOCICLIB
     Indication: BREAST CANCER FEMALE
     Dosage: 75 MG, UNK
  2. ZOMETA [Concomitant]
     Active Substance: ZOLEDRONIC ACID
     Indication: BONE CANCER
     Dosage: UNK

REACTIONS (3)
  - Neoplasm progression [Unknown]
  - Headache [Unknown]
  - Fatigue [Unknown]
